FAERS Safety Report 7390409-9 (Version None)
Quarter: 2011Q2

REPORT INFORMATION
  Report Type: 
  Country: None (occurrence: None)
  Receive Date: 20110401
  Receipt Date: 20110330
  Transmission Date: 20111010
  Serious: Yes (Hospitalization, Other)
  Sender: FDA-Public Use
  Company Number: IE-ABBOTT-11P-229-0708847-00

PATIENT
  Sex: Female

DRUGS (5)
  1. PREDNISOLONE [Concomitant]
     Indication: PRODUCT USED FOR UNKNOWN INDICATION
  2. METHADONE [Concomitant]
     Indication: PRODUCT USED FOR UNKNOWN INDICATION
  3. HUMIRA [Suspect]
     Indication: CROHN'S DISEASE
     Dosage: 160 MG LOADING DOSE
     Route: 058
     Dates: start: 20100929, end: 20100929
  4. HUMIRA [Suspect]
     Dosage: 80 MG LOADING DOSE
     Route: 058
  5. HUMIRA [Suspect]
     Route: 058

REACTIONS (4)
  - CROHN'S DISEASE [None]
  - SKIN REACTION [None]
  - BLISTER [None]
  - RASH [None]
